FAERS Safety Report 5030658-8 (Version None)
Quarter: 2006Q2

REPORT INFORMATION
  Report Type: 
  Country: None (occurrence: None)
  Receive Date: 20060615
  Receipt Date: 20060608
  Transmission Date: 20061013
  Serious: Yes (Hospitalization)
  Sender: FDA-Public Use
  Company Number: FRWYE173716JUN03

PATIENT
  Age: 38 Year
  Sex: Female

DRUGS (6)
  1. RAPAMUNE [Suspect]
     Indication: PROPHYLAXIS AGAINST TRANSPLANT REJECTION
     Dosage: 9 MG 1X PER 1 DAY ORAL
     Route: 048
     Dates: start: 20030526
  2. CELLCEPT [Suspect]
     Indication: PROPHYLAXIS AGAINST TRANSPLANT REJECTION
     Dosage: 1 G 1X PER 1 DAY ORAL
     Route: 048
     Dates: start: 20030525
  3. SOLUPRED (PREDNISOLONE SODIUM SULFOBENZOATE) [Concomitant]
  4. VALACYCLOVIR [Concomitant]
  5. BACTRIM [Concomitant]
  6. MODIODAL (MODAFINIL) [Concomitant]

REACTIONS (8)
  - BLOOD LACTATE DEHYDROGENASE INCREASED [None]
  - BODY TEMPERATURE INCREASED [None]
  - HAEMOGLOBIN DECREASED [None]
  - HAPTOGLOBIN DECREASED [None]
  - KIDNEY TRANSPLANT REJECTION [None]
  - PANCYTOPENIA [None]
  - PROTEINURIA [None]
  - RENAL IMPAIRMENT [None]
